FAERS Safety Report 12761289 (Version 1)
Quarter: 2016Q3

REPORT INFORMATION
  Report Type: Spontaneous
  Country: US (occurrence: US)
  Receive Date: 20160920
  Receipt Date: 20160920
  Transmission Date: 20161109
  Serious: No
  Sender: FDA-Public Use
  Company Number: US-TEVA-660426USA

PATIENT
  Sex: Female

DRUGS (1)
  1. TRI-LEGEST FE 28 DAY [Suspect]
     Active Substance: ETHINYL ESTRADIOL\NORETHINDRONE ACETATE
     Indication: CONTRACEPTION
     Dates: start: 2013

REACTIONS (7)
  - Anxiety [Unknown]
  - Presyncope [Unknown]
  - Dizziness [Unknown]
  - Adverse event [Unknown]
  - Inappropriate schedule of drug administration [Unknown]
  - Breast atrophy [Unknown]
  - Mood altered [Unknown]
